FAERS Safety Report 7375256-6 (Version None)
Quarter: 2011Q1

REPORT INFORMATION
  Report Type: 
  Country: None (occurrence: None)
  Receive Date: 20110325
  Receipt Date: 20110322
  Transmission Date: 20110831
  Serious: Yes (Other)
  Sender: FDA-Public Use
  Company Number: FI-PFIZER INC-2011062663

PATIENT

DRUGS (1)
  1. LYRICA [Suspect]

REACTIONS (1)
  - POISONING [None]
